FAERS Safety Report 5052144-1 (Version None)
Quarter: 2006Q3

REPORT INFORMATION
  Report Type: 
  Country: None (occurrence: None)
  Receive Date: 20060712
  Receipt Date: 20060712
  Transmission Date: 20061208
  Serious: Yes (Death)
  Sender: FDA-Public Use
  Company Number: None

PATIENT
  Age: 47 Year
  Sex: Female

DRUGS (2)
  1. PHENYTOIN [Suspect]
     Indication: PROPHYLAXIS
     Dosage: 100 MG Q8H PO
     Route: 048
     Dates: start: 20060425, end: 20060610
  2. PHENYTOIN [Suspect]
     Indication: SUBARACHNOID HAEMORRHAGE
     Dosage: 100 MG Q8H PO
     Route: 048
     Dates: start: 20060425, end: 20060610

REACTIONS (9)
  - ALANINE AMINOTRANSFERASE INCREASED [None]
  - ASPARTATE AMINOTRANSFERASE INCREASED [None]
  - ASPERGILLOSIS [None]
  - BILIRUBIN CONJUGATED INCREASED [None]
  - BIOPSY LYMPH GLAND ABNORMAL [None]
  - EOSINOPHILIA [None]
  - LIVER FUNCTION TEST ABNORMAL [None]
  - PYREXIA [None]
  - SYSTEMIC CANDIDA [None]
